FAERS Safety Report 7305483-5 (Version None)
Quarter: 2011Q1

REPORT INFORMATION
  Report Type: 
  Country: None (occurrence: None)
  Receive Date: 20110222
  Receipt Date: 20110214
  Transmission Date: 20110831
  Serious: Yes (Hospitalization)
  Sender: FDA-Public Use
  Company Number: US-GILEAD-2011-0036527

PATIENT
  Age: 64 Year
  Sex: Female

DRUGS (4)
  1. FLOLAN [Concomitant]
  2. LETAIRIS [Suspect]
     Indication: PULMONARY HYPERTENSION
     Route: 048
     Dates: start: 20091202
  3. TRACLEER [Concomitant]
  4. REVATIO [Concomitant]

REACTIONS (2)
  - PULMONARY ARTERIAL HYPERTENSION [None]
  - SCLERODERMA [None]
